FAERS Safety Report 5456158-9 (Version None)
Quarter: 2007Q3

REPORT INFORMATION
  Report Type: 
  Country: None (occurrence: None)
  Receive Date: 20070918
  Receipt Date: 20061204
  Transmission Date: 20080115
  Serious: No
  Sender: FDA-Public Use
  Company Number: US-ASTRAZENECA-2006UW24374

PATIENT
  Age: 33 Year
  Sex: Female
  Weight: 71.7 kg

DRUGS (3)
  1. SEROQUEL [Suspect]
     Indication: BIPOLAR I DISORDER
     Dosage: HALF OF 300MG TABLET
     Route: 048
  2. SEROQUEL [Suspect]
     Route: 048
  3. LAMOTRIGINE [Concomitant]

REACTIONS (3)
  - RESTLESS LEGS SYNDROME [None]
  - SOMNOLENCE [None]
  - SPEECH DISORDER [None]
